FAERS Safety Report 5739736-9 (Version None)
Quarter: 2008Q2

REPORT INFORMATION
  Report Type: 
  Country: None (occurrence: None)
  Receive Date: 20080512
  Receipt Date: 20080512
  Transmission Date: 20081010
  Serious: Yes (Hospitalization)
  Sender: FDA-Public Use
  Company Number: None

PATIENT
  Age: 83 Year
  Sex: Male

DRUGS (4)
  1. CLOPIDOGREL [Suspect]
     Indication: PULMONARY EMBOLISM
  2. CLOPIDOGREL [Suspect]
     Indication: THROMBOSIS PROPHYLAXIS
  3. FUROSEMIDE [Suspect]
     Indication: CARDIAC FAILURE CONGESTIVE
  4. FUROSEMIDE [Suspect]
     Indication: HYPERTENSION

REACTIONS (10)
  - DUODENITIS [None]
  - DYSPNOEA EXERTIONAL [None]
  - FALL [None]
  - GASTRIC ULCER [None]
  - GASTRITIS [None]
  - HAEMOGLOBIN DECREASED [None]
  - HYPOTENSION [None]
  - MELAENA [None]
  - PRESYNCOPE [None]
  - RENAL FAILURE [None]
